FAERS Safety Report 22211234 (Version 3)
Quarter: 2023Q2

REPORT INFORMATION
  Report Type: Spontaneous
  Country: PT (occurrence: PT)
  Receive Date: 20230414
  Receipt Date: 20230515
  Transmission Date: 20230722
  Serious: Yes (Hospitalization, Other)
  Sender: FDA-Public Use
  Company Number: PT-Accord-308256

PATIENT
  Age: 57 Year
  Sex: Male

DRUGS (9)
  1. GEMCITABINE [Suspect]
     Active Substance: GEMCITABINE
     Indication: Thyroid cancer metastatic
     Dosage: INTERVAL BETWEEN CYCLES WAS PROLONGED (EVERY THREE WEEKS)
     Dates: start: 201607, end: 201701
  2. OXALIPLATIN [Suspect]
     Active Substance: OXALIPLATIN
     Indication: Thyroid cancer metastatic
     Dosage: DOSAGE WAS REDUCED BY 20%
     Dates: start: 201701
  3. LENVATINIB [Concomitant]
     Active Substance: LENVATINIB
     Indication: Respiratory symptom
     Dates: start: 201802
  4. HYDROCHLOROTHIAZIDE\LOSARTAN [Concomitant]
     Active Substance: HYDROCHLOROTHIAZIDE\LOSARTAN
     Indication: Hypertension
     Dates: start: 2014
  5. SUNITINIB [Concomitant]
     Active Substance: SUNITINIB
     Indication: Bone lesion
     Dosage: LOWER DOSE
     Dates: start: 201510
  6. OXYGEN [Concomitant]
     Active Substance: OXYGEN
     Indication: Dyspnoea
     Dates: start: 2016, end: 2017
  7. GEMCITABINE [Suspect]
     Active Substance: GEMCITABINE
     Indication: Thyroid cancer metastatic
     Dosage: 27 CYCLES WITH EACH CYCLE BEING ADMINISTERED EVERY 2 TO 3 WEEKS
     Dates: start: 201806
  8. OXALIPLATIN [Suspect]
     Active Substance: OXALIPLATIN
     Indication: Thyroid cancer metastatic
     Dosage: 27 CYCLES WITH EACH CYCLE BEING ADMINISTERED EVERY 2 TO 3 WEEKS
     Dates: start: 201806, end: 202006
  9. OXALIPLATIN [Suspect]
     Active Substance: OXALIPLATIN
     Indication: Thyroid cancer metastatic
     Dates: start: 201606

REACTIONS (6)
  - Off label use [Unknown]
  - Peripheral sensory neuropathy [Unknown]
  - Haematotoxicity [Unknown]
  - Superior vena cava syndrome [Unknown]
  - Pneumonia [Unknown]
  - Thyroglobulin increased [Recovered/Resolved]

NARRATIVE: CASE EVENT DATE: 20191201
